FAERS Safety Report 24239698 (Version 1)
Quarter: 2024Q3

REPORT INFORMATION
  Report Type: Spontaneous
  Country: US (occurrence: US)
  Receive Date: 20240822
  Receipt Date: 20240822
  Transmission Date: 20241016
  Serious: No
  Sender: AVADEL CNS PHARMA
  Company Number: US-AVADEL CNS PHARMACEUTICALS, LLC-2024AVA00813

PATIENT
  Sex: Female
  Weight: 57.596 kg

DRUGS (13)
  1. LUMRYZ [Suspect]
     Active Substance: SODIUM OXYBATE
     Indication: Narcolepsy
     Dosage: 4.5 G, ONCE NIGHT
     Route: 048
     Dates: start: 202404, end: 202405
  2. LUMRYZ [Suspect]
     Active Substance: SODIUM OXYBATE
     Indication: Cataplexy
     Dosage: 4.5 G, ONCE NIGHT
     Route: 048
     Dates: start: 2024, end: 202407
  3. LUMRYZ [Suspect]
     Active Substance: SODIUM OXYBATE
     Indication: Narcolepsy
     Dosage: 6 G, ONCE NIGHTLY
     Route: 048
     Dates: start: 202405, end: 202405
  4. LUMRYZ [Suspect]
     Active Substance: SODIUM OXYBATE
     Indication: Cataplexy
     Dosage: 6 G, ONCE NIGHTLY
     Route: 048
     Dates: start: 20240605, end: 20240618
  5. LUMRYZ [Suspect]
     Active Substance: SODIUM OXYBATE
     Dosage: 6 G, ONCE NIGHTLY
     Route: 048
     Dates: start: 2024, end: 2024
  6. LUMRYZ [Suspect]
     Active Substance: SODIUM OXYBATE
     Indication: Narcolepsy
     Dosage: 7.5 G, ONCE DAILY
     Route: 048
     Dates: start: 202405, end: 20240604
  7. LUMRYZ [Suspect]
     Active Substance: SODIUM OXYBATE
     Indication: Cataplexy
  8. LAMICTAL [Concomitant]
     Active Substance: LAMOTRIGINE
  9. NORETHINDRONE [Concomitant]
     Active Substance: NORETHINDRONE
  10. VITAMIN E [Concomitant]
     Active Substance: .ALPHA.-TOCOPHEROL
  11. MELATONIN [Concomitant]
     Active Substance: MELATONIN
  12. NURTEC ODT [Concomitant]
     Active Substance: RIMEGEPANT SULFATE
  13. TIZANIDINE [Concomitant]
     Active Substance: TIZANIDINE

REACTIONS (13)
  - Flat affect [Recovering/Resolving]
  - Fatigue [Recovering/Resolving]
  - Insomnia [Recovered/Resolved]
  - Abnormal dreams [Not Recovered/Not Resolved]
  - Asthenia [Recovering/Resolving]
  - Stress [Recovering/Resolving]
  - Nasal congestion [Recovered/Resolved]
  - Cough [Recovered/Resolved]
  - Nasopharyngitis [Recovered/Resolved]
  - Hypnagogic hallucination [Recovering/Resolving]
  - Somnolence [Recovering/Resolving]
  - Depression [Recovering/Resolving]
  - Drug ineffective [Not Recovered/Not Resolved]

NARRATIVE: CASE EVENT DATE: 20240101
